FAERS Safety Report 15366332 (Version 1)
Quarter: 2018Q3

REPORT INFORMATION
  Report Type: Spontaneous
  Country: US (occurrence: US)
  Receive Date: 20180831
  Receipt Date: 20180831
  Transmission Date: 20181010
  Serious: Yes (Other)
  Sender: FDA-Public Use
  Company Number: None

PATIENT
  Age: 66 Year
  Sex: Male
  Weight: 120.6 kg

DRUGS (8)
  1. VALSARTAN 320MG DAILY [Concomitant]
  2. OMEPRAZOLE 40MG DAILY [Concomitant]
  3. JARDIANCE [Suspect]
     Active Substance: EMPAGLIFLOZIN
     Indication: DIABETES MELLITUS
     Route: 048
  4. CRESTOR 20MG DAILY [Concomitant]
  5. LEVOTHYROXINE 225MCG DAILY [Concomitant]
  6. LEXAPRO 20MG DAILY [Concomitant]
  7. AMLODIPINE 5MG DAILY [Concomitant]
  8. METFORMIN 500MG BID [Concomitant]

REACTIONS (1)
  - Balanoposthitis [None]

NARRATIVE: CASE EVENT DATE: 20180327
